FAERS Safety Report 5361507-6 (Version None)
Quarter: 2007Q2

REPORT INFORMATION
  Report Type: 
  Country: None (occurrence: None)
  Receive Date: 20070619
  Receipt Date: 20070613
  Transmission Date: 20071010
  Serious: Yes (Death, Hospitalization)
  Sender: FDA-Public Use
  Company Number: PHBS2002CH12048

PATIENT
  Age: 37 Year
  Sex: Male

DRUGS (4)
  1. GLEEVEC [Suspect]
     Indication: CHRONIC MYELOID LEUKAEMIA
     Dosage: 400 MG/D
     Route: 048
     Dates: start: 20020512, end: 20020624
  2. GLEEVEC [Suspect]
     Dosage: 300 MG/D
     Route: 048
     Dates: start: 20020625, end: 20020924
  3. GLEEVEC [Suspect]
     Route: 048
     Dates: start: 20050624, end: 20060424
  4. HEMATOPOETIC PROGENITOR CELLS HUMAN [Concomitant]
     Dosage: ALLO-TRANSPLANTATION
     Route: 065
     Dates: start: 20030101

REACTIONS (10)
  - ABDOMINAL PAIN UPPER [None]
  - ACUTE LEUKAEMIA [None]
  - ASCITES [None]
  - C-REACTIVE PROTEIN INCREASED [None]
  - CHOLESTASIS [None]
  - HEPATIC ENZYME INCREASED [None]
  - LYMPHOPENIA [None]
  - MALIGNANT NEOPLASM PROGRESSION [None]
  - PANCYTOPENIA [None]
  - PERITONEAL TUBERCULOSIS [None]
